FAERS Safety Report 19086449 (Version 4)
Quarter: 2021Q2

REPORT INFORMATION
  Report Type: Spontaneous
  Country: GB (occurrence: GB)
  Receive Date: 20210402
  Receipt Date: 20210417
  Transmission Date: 20210717
  Serious: Yes (Death)
  Sender: FDA-Public Use
  Company Number: GB-B.I. PHARMACEUTICALS,INC./RIDGEFIELD-2020-BI-041861

PATIENT
  Age: 53 Year
  Sex: Female

DRUGS (1)
  1. OFEV [Suspect]
     Active Substance: NINTEDANIB
     Indication: HYPERSENSITIVITY PNEUMONITIS

REACTIONS (3)
  - Off label use [Unknown]
  - Interstitial lung disease [Fatal]
  - COVID-19 [Unknown]

NARRATIVE: CASE EVENT DATE: 202010
